FAERS Safety Report 20497260 (Version 1)
Quarter: 2022Q1

REPORT INFORMATION
  Report Type: Spontaneous
  Country: DE (occurrence: DE)
  Receive Date: 20220221
  Receipt Date: 20220221
  Transmission Date: 20220423
  Serious: Yes (Congenital Anomaly, Other)
  Sender: FDA-Public Use
  Company Number: DE-EMBRYOTOX-202008431-B

PATIENT
  Age: 1 Day
  Sex: Female
  Weight: 2.46 kg

DRUGS (4)
  1. VENLAFAXINE [Suspect]
     Active Substance: VENLAFAXINE HYDROCHLORIDE
     Indication: Borderline personality disorder
     Dosage: 225 [MG/D ]
     Route: 064
     Dates: start: 20200613, end: 20210304
  2. SEROQUEL [Suspect]
     Active Substance: QUETIAPINE FUMARATE
     Indication: Borderline personality disorder
     Dosage: 800 [MG/D ]
     Route: 064
     Dates: start: 20200613, end: 20210304
  3. INSULIN NOS [Concomitant]
     Active Substance: INSULIN NOS
     Indication: Gestational diabetes
     Dosage: UNKNOWN, WHEN INSULIN THERAPY WAS STARTED
     Route: 064
  4. PROGESTERONE [Concomitant]
     Active Substance: PROGESTERONE
     Indication: Prophylaxis of abortion
     Dosage: 800 [MG/D ]
     Route: 064
     Dates: start: 20200622, end: 20200830

REACTIONS (7)
  - Withdrawal syndrome [Recovered/Resolved]
  - Pyelonephritis [Recovered/Resolved]
  - Atrial septal defect [Recovered/Resolved]
  - Ventricular septal defect [Unknown]
  - Single umbilical artery [Unknown]
  - Congenital vesicoureteric reflux [Unknown]
  - Foetal exposure during pregnancy [Unknown]

NARRATIVE: CASE EVENT DATE: 20210301
